FAERS Safety Report 24756767 (Version 1)
Quarter: 2024Q4

REPORT INFORMATION
  Report Type: Spontaneous
  Country: MY (occurrence: MY)
  Receive Date: 20241220
  Receipt Date: 20241220
  Transmission Date: 20250115
  Serious: Yes (Hospitalization, Other)
  Sender: AVYXA HOLDINGS, LLC
  Company Number: MY-AVYXA HOLDINGS, LLC-2024AVY000018

PATIENT
  Age: 28 Year
  Sex: Female

DRUGS (6)
  1. PALONOSETRON HYDROCHLORIDE [Suspect]
     Active Substance: PALONOSETRON HYDROCHLORIDE
     Indication: Prophylaxis of nausea and vomiting
     Dosage: 75 MICROGRAM
     Route: 042
  2. FENTANYL [Concomitant]
     Active Substance: FENTANYL
     Indication: General anaesthesia
     Dosage: 100 MICROGRAM
     Route: 042
  3. PROPOFOL [Concomitant]
     Active Substance: PROPOFOL
     Indication: General anaesthesia
     Dosage: 100 MILLIGRAM
     Route: 042
  4. CEFUROXIME [Concomitant]
     Active Substance: CEFUROXIME
     Indication: Prophylaxis of nausea and vomiting
     Dosage: 1.5 GRAM
     Route: 042
  5. PARECOXIB [Concomitant]
     Active Substance: PARECOXIB
     Indication: Prophylaxis of nausea and vomiting
     Dosage: 40 GRAM
     Route: 042
  6. SEVOFLURANE [Concomitant]
     Active Substance: SEVOFLURANE
     Indication: General anaesthesia
     Dosage: UNK
     Route: 055

REACTIONS (3)
  - Myoclonus [Recovered/Resolved]
  - Bradycardia [Recovered/Resolved]
  - Hypotension [Recovered/Resolved]
